FAERS Safety Report 7733523-8 (Version None)
Quarter: 2011Q3

REPORT INFORMATION
  Report Type: 
  Country: None (occurrence: None)
  Receive Date: 20110907
  Receipt Date: 20110907
  Transmission Date: 20111222
  Serious: No
  Sender: FDA-Public Use
  Company Number: None

PATIENT
  Age: 50 Year
  Sex: Female
  Weight: 68.946 kg

DRUGS (2)
  1. DIOVAN [Suspect]
     Indication: RENAL DISORDER
     Dates: start: 20090101, end: 20110501
  2. LOSARTAN POTASSIUM AND HYDROCHLOROTHIAZIDE [Concomitant]
     Indication: RENAL DISORDER
     Dates: start: 20110501, end: 20110906

REACTIONS (3)
  - FEELING ABNORMAL [None]
  - INFLUENZA [None]
  - ADVERSE EVENT [None]
